FAERS Safety Report 4535057-0 (Version None)
Quarter: 2004Q4

REPORT INFORMATION
  Report Type: 
  Country: None (occurrence: None)
  Receive Date: 20041222
  Receipt Date: 20040629
  Transmission Date: 20050328
  Serious: Yes (Disabling)
  Sender: FDA-Public Use
  Company Number: DE-ROCHE-372741

PATIENT
  Age: 47 Year
  Sex: Female

DRUGS (11)
  1. ROCEPHIN [Suspect]
     Indication: LYME DISEASE
     Dosage: OVER 4 YEARS (ONLY PAUSED ON WEEKENDS). ROCEPHIN WAS GIVEN UP UNTIL 2001/2002.
     Route: 042
     Dates: start: 19980815
  2. CLARITHROMYCIN [Suspect]
     Indication: DRUG USE FOR UNKNOWN INDICATION
     Route: 065
  3. AZITHROMYCIN [Suspect]
     Indication: DRUG USE FOR UNKNOWN INDICATION
     Route: 065
  4. ROXITHROMYCIN [Suspect]
     Indication: DRUG USE FOR UNKNOWN INDICATION
     Route: 065
  5. TRIMETHOPRIM [Concomitant]
  6. TETRACYCLIN [Concomitant]
  7. DOXYCYCLIN [Concomitant]
  8. METRONIDAZOLE [Concomitant]
  9. METFORMIN HCL [Concomitant]
  10. UNKNOWN MEDICATION [Concomitant]
     Dosage: REPORTED AS REPLAGLINID.
  11. PIOGLITAZON [Concomitant]

REACTIONS (1)
  - HEARING IMPAIRED [None]
